FAERS Safety Report 7498494-0 (Version None)
Quarter: 2011Q2

REPORT INFORMATION
  Report Type: 
  Country: None (occurrence: None)
  Receive Date: 20110516
  Receipt Date: 20110505
  Transmission Date: 20111010
  Serious: Yes (Disabling)
  Sender: FDA-Public Use
  Company Number: TRP_07724_2011

PATIENT
  Age: 65 Year
  Sex: Male
  Weight: 74 kg

DRUGS (4)
  1. HYDROCHLOROTHIAZIDE [Concomitant]
  2. PEGYLATED INTERFERON ALFA-2A (PEGYLATED INTERFERON ALFA-2A) [Suspect]
     Indication: HEPATITIS C
     Dosage: (180 ?G 1X/WEEK SUBCUTANEOUS)
     Route: 058
  3. ENALAPRIL MALEATE [Concomitant]
  4. RIBAVIRIN [Suspect]
     Indication: HEPATITIS C
     Dosage: (1000 MG, DAILY)

REACTIONS (5)
  - DEAFNESS UNILATERAL [None]
  - VESTIBULAR DISORDER [None]
  - ANAEMIA [None]
  - RED BLOOD CELL SEDIMENTATION RATE INCREASED [None]
  - NYSTAGMUS [None]
